FAERS Safety Report 15375979 (Version 1)
Quarter: 2018Q3

REPORT INFORMATION
  Report Type: Spontaneous
  Country: JP (occurrence: JP)
  Receive Date: 20180912
  Receipt Date: 20180912
  Transmission Date: 20181010
  Serious: Yes (Other)
  Sender: FDA-Public Use
  Company Number: JP-009507513-1809JPN000885J

PATIENT
  Age: 70 Year
  Sex: Male

DRUGS (4)
  1. ESLAX INTRAVENOUS 25MG/2.5ML [Suspect]
     Active Substance: ROCURONIUM BROMIDE
     Dosage: UNK
     Route: 042
  2. PROPOFOL. [Suspect]
     Active Substance: PROPOFOL
  3. CEFMETAZOLE NA [Suspect]
     Active Substance: CEFMETAZOLE
  4. REMIFENTANIL HYDROCHLORIDE. [Suspect]
     Active Substance: REMIFENTANIL HYDROCHLORIDE

REACTIONS (1)
  - Kounis syndrome [Unknown]
